FAERS Safety Report 23426296 (Version 2)
Quarter: 2024Q1

REPORT INFORMATION
  Report Type: Report from Study
  Country: EG (occurrence: EG)
  Receive Date: 20240122
  Receipt Date: 20240125
  Transmission Date: 20240410
  Serious: Yes (Disabling, Other)
  Sender: FDA-Public Use
  Company Number: EG-002147023-NVSC2024EG011943

PATIENT
  Sex: Female

DRUGS (6)
  1. GILENYA [Suspect]
     Active Substance: FINGOLIMOD HYDROCHLORIDE
     Indication: Multiple sclerosis
     Dosage: 1 DOSAGE FORM, QD
     Route: 048
     Dates: start: 202306
  2. CINNARIZINE [Concomitant]
     Active Substance: CINNARIZINE
     Indication: Migraine
     Dosage: 2 DOSAGE FORM, QD (FROM 3 TO 4 MONTHS UPON HER WORDS)
     Route: 065
  3. CINNARIZINE [Concomitant]
     Active Substance: CINNARIZINE
     Indication: Dizziness
  4. TEGRETOL XR [Concomitant]
     Active Substance: CARBAMAZEPINE
     Indication: Neuralgia
     Dosage: 2 DOSAGE FORM, QD 200 (FROM 3 TO 4 MONTHS UPON HER WORDS)
     Route: 065
  5. TEGRETOL XR [Concomitant]
     Active Substance: CARBAMAZEPINE
     Indication: Pain
  6. VERSERC [Concomitant]
     Indication: Dizziness
     Dosage: 1 DOSAGE FORM, QD
     Route: 065

REACTIONS (7)
  - Dysuria [Not Recovered/Not Resolved]
  - Full blood count abnormal [Unknown]
  - Blood triglycerides increased [Unknown]
  - Blood cholesterol increased [Unknown]
  - Urinary incontinence [Not Recovered/Not Resolved]
  - Decreased immune responsiveness [Unknown]
  - Haemoglobin decreased [Unknown]

NARRATIVE: CASE EVENT DATE: 20230101
